FAERS Safety Report 7628277-X (Version None)
Quarter: 2011Q3

REPORT INFORMATION
  Report Type: 
  Country: None (occurrence: None)
  Receive Date: 20110720
  Receipt Date: 20110720
  Transmission Date: 20111222
  Serious: Yes (Disabling)
  Sender: FDA-Public Use
  Company Number: None

PATIENT
  Sex: Female
  Weight: 54.4316 kg

DRUGS (3)
  1. FLUOXETINE [Suspect]
     Indication: BIPOLAR DISORDER
     Dosage: ONE PO QD
     Route: 048
     Dates: start: 20101215, end: 20110220
  2. FLUOXETINE [Suspect]
     Indication: GENERALISED ANXIETY DISORDER
     Dosage: ONE PO QD
     Route: 048
     Dates: start: 20101215, end: 20110220
  3. ABILIFY [Concomitant]

REACTIONS (10)
  - TREATMENT FAILURE [None]
  - TERMINAL INSOMNIA [None]
  - ACTIVITIES OF DAILY LIVING IMPAIRED [None]
  - UNEVALUABLE EVENT [None]
  - SLEEP DISORDER [None]
  - PRODUCT SUBSTITUTION ISSUE [None]
  - ANXIETY [None]
  - ANGER [None]
  - SOCIAL AVOIDANT BEHAVIOUR [None]
  - IMPAIRED DRIVING ABILITY [None]
